FAERS Safety Report 8392582-2 (Version None)
Quarter: 2012Q2

REPORT INFORMATION
  Report Type: 
  Country: None (occurrence: None)
  Receive Date: 20120529
  Receipt Date: 20120518
  Transmission Date: 20120825
  Serious: Yes (Hospitalization)
  Sender: FDA-Public Use
  Company Number: FR-UCBSA-057752

PATIENT
  Age: 80 Year
  Sex: Male

DRUGS (3)
  1. SINEMET [Concomitant]
     Indication: PARKINSON'S DISEASE
     Route: 048
     Dates: start: 20090101
  2. NEUPRO [Suspect]
     Indication: PARKINSON'S DISEASE
     Route: 062
     Dates: start: 20120501
  3. NEUPRO [Suspect]
     Route: 062
     Dates: start: 20110101, end: 20120501

REACTIONS (4)
  - OEDEMA PERIPHERAL [None]
  - FALL [None]
  - SUDDEN ONSET OF SLEEP [None]
  - MUSCLE SPASMS [None]
